FAERS Safety Report 8237927-9 (Version None)
Quarter: 2012Q1

REPORT INFORMATION
  Report Type: 
  Country: None (occurrence: None)
  Receive Date: 20120327
  Receipt Date: 20120320
  Transmission Date: 20120608
  Serious: Yes (Other)
  Sender: FDA-Public Use
  Company Number: US-BAYER-2011-061801

PATIENT
  Age: 33 Year
  Sex: Female
  Weight: 73 kg

DRUGS (4)
  1. DESOGESTREL AND ETHINYL ESTRADIOL [Concomitant]
     Dosage: UNK
     Dates: start: 20080101
  2. YASMIN [Suspect]
     Indication: ACNE
     Dosage: UNK
     Route: 048
     Dates: start: 20040101
  3. DROSPIRENONE AND ETHINYL ESTRADIOL [Suspect]
     Indication: ACNE
     Dosage: UNK
     Route: 048
     Dates: start: 20080101, end: 20090101
  4. YAZ [Concomitant]
     Indication: METRORRHAGIA

REACTIONS (12)
  - GENERAL PHYSICAL HEALTH DETERIORATION [None]
  - PAIN [None]
  - HERNIA [None]
  - EMOTIONAL DISTRESS [None]
  - INJURY [None]
  - WEIGHT DECREASED [None]
  - HEPATITIS [None]
  - PANCREATITIS [None]
  - GALLBLADDER DISORDER [None]
  - CHOLELITHIASIS [None]
  - ANXIETY [None]
  - ABDOMINAL PAIN [None]
